FAERS Safety Report 21868392 (Version 4)
Quarter: 2024Q1

REPORT INFORMATION
  Report Type: Report from Study
  Country: US (occurrence: US)
  Receive Date: 20230116
  Receipt Date: 20240110
  Transmission Date: 20240410
  Serious: Yes (Death, Other)
  Sender: FDA-Public Use
  Company Number: US-ACADIA PHARMACEUTICALS INC.-ACA-2022-PIM-004481

PATIENT
  Sex: Male

DRUGS (4)
  1. NUPLAZID [Suspect]
     Active Substance: PIMAVANSERIN TARTRATE
     Indication: Parkinson^s disease
     Dosage: 10 MILLIGRAM, QD
     Route: 048
  2. NUPLAZID [Suspect]
     Active Substance: PIMAVANSERIN TARTRATE
     Indication: Parkinson^s disease psychosis
     Dosage: 34 MILLIGRAM, QD
     Route: 048
     Dates: start: 2018
  3. CARBIDOPA [Concomitant]
     Active Substance: CARBIDOPA
     Dosage: UNK
     Dates: start: 2017
  4. RASAGILINE [Concomitant]
     Active Substance: RASAGILINE
     Dosage: UNK
     Dates: start: 2017

REACTIONS (3)
  - Pneumonia [Recovered/Resolved]
  - Speech disorder [Not Recovered/Not Resolved]
  - Dysgraphia [Not Recovered/Not Resolved]
